FAERS Safety Report 11009069 (Version 1)
Quarter: 2015Q2

REPORT INFORMATION
  Report Type: Spontaneous
  Country: US (occurrence: None)
  Receive Date: 20150409
  Receipt Date: 20150409
  Transmission Date: 20150821
  Serious: No
  Sender: FDA-Public Use
  Company Number: None

PATIENT
  Age: 68 Year
  Sex: Male
  Weight: 79.38 kg

DRUGS (3)
  1. REVLIMID [Suspect]
     Active Substance: LENALIDOMIDE
     Indication: PLASMA CELL MYELOMA
     Route: 048
     Dates: end: 20150408
  2. BORTEZOMIB [Concomitant]
     Active Substance: BORTEZOMIB
  3. MELPHALAN + CYCLOPHOSPHAMIDE [Concomitant]

REACTIONS (1)
  - Squamous cell carcinoma of skin [None]

NARRATIVE: CASE EVENT DATE: 20150319
